FAERS Safety Report 10005457 (Version 1)
Quarter: 2014Q1

REPORT INFORMATION
  Report Type: Report from Study
  Country: US (occurrence: US)
  Receive Date: 20140313
  Receipt Date: 20140313
  Transmission Date: 20141002
  Serious: Yes (Hospitalization)
  Sender: FDA-Public Use
  Company Number: US-AMGEN-USANI2014016525

PATIENT
  Age: 55 Year
  Sex: Female

DRUGS (9)
  1. DENOSUMAB [Suspect]
     Indication: OSTEOPOROSIS POSTMENOPAUSAL
     Dosage: 60 MG, Q6MO
     Route: 058
     Dates: start: 20111031
  2. BUPROPION HYDROCHLORIDE [Concomitant]
     Dosage: 300 MG, QD
     Route: 048
     Dates: start: 20131206
  3. LEVOTHYROXINE [Concomitant]
     Dosage: 50 MUG, QD
     Route: 048
     Dates: start: 20131206
  4. VITAMIN D2 [Concomitant]
     Dosage: 5000 UNIT, QD
     Route: 048
     Dates: start: 20130312
  5. ESTRADIOL [Concomitant]
     Dosage: 1 MG, QD
     Route: 048
     Dates: start: 20130204
  6. MONTELUKAST [Concomitant]
     Dosage: 10 MG, QD
     Route: 048
     Dates: start: 20130204
  7. PROGESTERONE [Concomitant]
     Dosage: 100 MG, QD, 10 DAYS
     Route: 048
     Dates: start: 20130204
  8. SPIRONOLACTONE [Concomitant]
     Dosage: 25 MG, BID
     Route: 048
     Dates: start: 20130204
  9. THEO 24 [Concomitant]
     Dosage: 200 MG, QD
     Route: 048
     Dates: start: 20130204

REACTIONS (1)
  - Wound infection [Not Recovered/Not Resolved]
